FAERS Safety Report 8894054 (Version 4)
Quarter: 2013Q2

REPORT INFORMATION
  Report Type: Spontaneous
  Country: US (occurrence: US)
  Receive Date: 20121108
  Receipt Date: 20130603
  Transmission Date: 20140414
  Serious: Yes (Hospitalization, Other)
  Sender: FDA-Public Use
  Company Number: US-009507513-1211USA001647

PATIENT
  Sex: Female
  Weight: 91.61 kg

DRUGS (5)
  1. FOSAMAX [Suspect]
     Indication: OSTEOPENIA
     Dosage: 70 MG, QW
     Route: 048
     Dates: start: 200302, end: 201106
  2. FOSAMAX [Suspect]
     Indication: OSTEOPOROSIS PROPHYLAXIS
     Route: 048
  3. FOSAMAX [Suspect]
     Indication: OSTEOPOROSIS
  4. ALENDRONATE SODIUM [Suspect]
  5. VITAMIN D (UNSPECIFIED) [Concomitant]
     Indication: OSTEOPENIA

REACTIONS (18)
  - Femur fracture [Unknown]
  - Medical device removal [Unknown]
  - Intramedullary rod insertion [Unknown]
  - Intramedullary rod insertion [Unknown]
  - Osteonecrosis [Unknown]
  - Femur fracture [Unknown]
  - Low turnover osteopathy [Unknown]
  - Osteoporosis [Unknown]
  - Thyroxine increased [Unknown]
  - Vitamin D deficiency [Unknown]
  - Pilonidal cyst [Unknown]
  - Osteoarthritis [Unknown]
  - Periarthritis [Unknown]
  - Periarthritis [Unknown]
  - Intervertebral disc degeneration [Unknown]
  - Joint injury [Unknown]
  - Hypothyroidism [Unknown]
  - Constipation [Unknown]
